FAERS Safety Report 9639201 (Version 1)
Quarter: 2013Q4

REPORT INFORMATION
  Report Type: Spontaneous
  Country: US (occurrence: None)
  Receive Date: 20131021
  Receipt Date: 20131021
  Transmission Date: 20140711
  Serious: Yes (Death)
  Sender: FDA-Public Use
  Company Number: 2013AP008646

PATIENT
  Age: 54 Year
  Sex: Female

DRUGS (9)
  1. AMLODIPINE BESYLATE TABLETS [Suspect]
     Route: 048
  2. GABAPENTIN [Suspect]
     Route: 048
  3. LAMOTRIGINE TABLETS [Suspect]
     Route: 048
  4. RISPERIDONE [Suspect]
  5. LISINOPRIL TABLETS [Suspect]
     Route: 048
  6. BUSPIRONE HYDROCHLORIDE TABLETS, USP [Suspect]
     Route: 048
  7. OXCARBAZEPINE [Suspect]
     Route: 048
  8. HYDROXYZINE [Suspect]
     Route: 048
  9. FLUOXETINE HYDROCHLORIDE [Suspect]
     Route: 048

REACTIONS (1)
  - Completed suicide [None]
